FAERS Safety Report 10549581 (Version 2)
Quarter: 2014Q4

REPORT INFORMATION
  Report Type: Report from Study
  Country: ES (occurrence: ES)
  Receive Date: 20141028
  Receipt Date: 20141111
  Transmission Date: 20150529
  Serious: Yes (Death, Hospitalization, Other)
  Sender: FDA-Public Use
  Company Number: ES-GILEAD-2014-0120164

PATIENT
  Age: 52 Year
  Sex: Male
  Weight: 89 kg

DRUGS (10)
  1. SOFOSBUVIR [Suspect]
     Active Substance: SOFOSBUVIR
     Indication: HEPATITIS C
     Dosage: 400 MG, QD
     Route: 048
     Dates: start: 20140627, end: 20141022
  2. FUROSEMIDE. [Concomitant]
     Active Substance: FUROSEMIDE
     Indication: ASCITES
     Dosage: UNK
     Dates: start: 20130911, end: 20141022
  3. ESPIRONOLACTONA [Concomitant]
     Active Substance: SPIRONOLACTONE
     Indication: ASCITES
     Dosage: UNK
     Dates: start: 20130612, end: 20141022
  4. PROPRANOLOL [Concomitant]
     Active Substance: PROPRANOLOL\PROPRANOLOL HYDROCHLORIDE
     Indication: PORTAL HYPERTENSION
     Dosage: UNK
     Dates: start: 20131211, end: 20141022
  5. QUININE SULFATE. [Concomitant]
     Active Substance: QUININE SULFATE
     Indication: PRODUCT USED FOR UNKNOWN INDICATION
  6. RIFAXIMINA [Concomitant]
     Indication: HEPATIC ENCEPHALOPATHY
     Dosage: UNK
     Dates: start: 20140612, end: 20141022
  7. NORFLOXACINO [Concomitant]
     Indication: INFECTION PROPHYLAXIS
     Dosage: UNK
     Dates: start: 20140612, end: 20141022
  8. SILDENAFILO [Concomitant]
     Indication: PRODUCT USED FOR UNKNOWN INDICATION
  9. SOFOSBUVIR [Suspect]
     Active Substance: SOFOSBUVIR
     Indication: HEPATIC CIRRHOSIS
  10. IDEOS [Concomitant]
     Active Substance: CALCIUM CARBONATE\CHOLECALCIFEROL
     Indication: PRODUCT USED FOR UNKNOWN INDICATION

REACTIONS (4)
  - Oesophageal varices haemorrhage [Fatal]
  - Pyrexia [Fatal]
  - Intestinal perforation [Fatal]
  - Diverticulitis intestinal haemorrhagic [Fatal]

NARRATIVE: CASE EVENT DATE: 20140930
